FAERS Safety Report 25459940 (Version 1)
Quarter: 2025Q2

REPORT INFORMATION
  Report Type: Spontaneous
  Country: TZ (occurrence: TZ)
  Receive Date: 20250620
  Receipt Date: 20250620
  Transmission Date: 20250717
  Serious: Yes (Death, Life-Threatening, Hospitalization, Other)
  Sender: Unknown Manufacturer
  Company Number: TZ-862174955-ML2025-02941

PATIENT
  Age: 37 Year
  Sex: Female

DRUGS (4)
  1. TRANEXAMIC ACID [Suspect]
     Active Substance: TRANEXAMIC ACID
     Indication: Anaesthesia
     Route: 037
  2. PROPOFOL [Concomitant]
     Active Substance: PROPOFOL
     Indication: General anaesthesia
  3. MEPERIDINE [Concomitant]
     Active Substance: MEPERIDINE
     Indication: General anaesthesia
  4. SUCCINYLCHOLINE [Concomitant]
     Active Substance: SUCCINYLCHOLINE
     Indication: General anaesthesia

REACTIONS (10)
  - Cardiac arrest [Fatal]
  - Wrong product administered [Fatal]
  - Pruritus [Unknown]
  - Back pain [Unknown]
  - Agitation [Unknown]
  - Tachycardia [Unknown]
  - Hypertension [Unknown]
  - Muscle discomfort [Unknown]
  - Generalised tonic-clonic seizure [Unknown]
  - Maternal exposure during delivery [Unknown]
